FAERS Safety Report 6603443-0 (Version None)
Quarter: 2010Q1

REPORT INFORMATION
  Report Type: 
  Country: None (occurrence: None)
  Receive Date: 20100226
  Receipt Date: 20090605
  Transmission Date: 20100710
  Serious: No
  Sender: FDA-Public Use
  Company Number: A0787725A

PATIENT
  Age: 58 Year
  Sex: Female

DRUGS (3)
  1. VALTREX [Suspect]
     Dosage: 1G THREE TIMES PER DAY
     Route: 048
     Dates: start: 20090529
  2. SINGULAIR [Concomitant]
  3. ASPIRIN WITH CODEINE [Concomitant]

REACTIONS (3)
  - DRY SKIN [None]
  - PAIN [None]
  - THERAPEUTIC RESPONSE UNEXPECTED [None]
